FAERS Safety Report 20461946 (Version 1)
Quarter: 2022Q1

REPORT INFORMATION
  Report Type: Report from Study
  Country: IE (occurrence: IE)
  Receive Date: 20220211
  Receipt Date: 20220211
  Transmission Date: 20220423
  Serious: Yes (Hospitalization, Other)
  Sender: FDA-Public Use
  Company Number: IE-AstraZeneca-2022A059811

PATIENT
  Age: 0 Year
  Sex: Male

DRUGS (4)
  1. SYNAGIS [Suspect]
     Active Substance: PALIVIZUMAB
     Indication: Bronchopulmonary dysplasia
     Route: 030
     Dates: start: 20220108
  2. SYNAGIS [Suspect]
     Active Substance: PALIVIZUMAB
     Route: 030
     Dates: start: 20211207
  3. HYDROCHLOROTHIAZIDE [Concomitant]
     Active Substance: HYDROCHLOROTHIAZIDE
     Dates: start: 20211217
  4. FUROSEMIDE [Concomitant]
     Active Substance: FUROSEMIDE
     Dates: start: 20211217

REACTIONS (2)
  - Respiratory disorder [Unknown]
  - Enterovirus infection [Recovering/Resolving]

NARRATIVE: CASE EVENT DATE: 20220129
